FAERS Safety Report 16714204 (Version 8)
Quarter: 2020Q1

REPORT INFORMATION
  Report Type: Report from Study
  Country: CN (occurrence: CN)
  Receive Date: 20190819
  Receipt Date: 20200109
  Transmission Date: 20200409
  Serious: Yes (Hospitalization)
  Sender: FDA-Public Use
  Company Number: CN-ROCHE-2372587

PATIENT
  Age: 33 Year
  Sex: Male
  Weight: 63 kg

DRUGS (8)
  1. BEVACIZUMAB. [Suspect]
     Active Substance: BEVACIZUMAB
     Indication: HEPATOCELLULAR CARCINOMA
     Dosage: ON DAY 1 OF EACH 21 DAY CYCLE?DATE OF MOST RECENT DOSE OF BEVACIZUMAB (1080 MG) PRIOR TO EVENT ONSET
     Route: 042
     Dates: start: 20190308
  2. ATEZOLIZUMAB. [Suspect]
     Active Substance: ATEZOLIZUMAB
     Indication: HEPATOCELLULAR CARCINOMA
     Dosage: ON DAY 1 OF EACH 21 DAY CYCLE?DATE OF MOST RECENT DOSE OF ATEZOLIZUMAB (1200 MG) PRIOR TO EVENT ONSE
     Route: 042
     Dates: start: 20190308
  3. MAGNESIUM ISOGLYCYRRHIZINATE [Concomitant]
     Active Substance: MAGNESIUM ISOGLYCYRRHIZINATE
     Indication: HEPATITIS VIRAL
     Route: 065
     Dates: start: 20190805, end: 20190812
  4. ENTECAVIR. [Concomitant]
     Active Substance: ENTECAVIR
     Indication: HEPATITIS B
     Route: 065
     Dates: start: 201803
  5. ADEMETIONINE 1,4-BUTANEDISULFONATE [Concomitant]
     Indication: HEPATIC CIRRHOSIS
     Route: 065
     Dates: start: 20190805, end: 20190812
  6. SILYMARIN [SILYBUM MARIANUM] [Concomitant]
     Indication: HEPATIC CIRRHOSIS
     Route: 065
     Dates: start: 20190419
  7. BICYCLOL [Concomitant]
     Active Substance: BICYCLOL
     Indication: HEPATITIS B
     Dosage: PIECE
     Route: 065
     Dates: start: 201803
  8. POLYENE PHOSPHATIDYLCHOLINE [Concomitant]
     Active Substance: PHOSPHOLIPID
     Indication: HEPATIC CIRRHOSIS
     Route: 065
     Dates: start: 20190805, end: 20190812

REACTIONS (2)
  - Aspartate aminotransferase increased [Not Recovered/Not Resolved]
  - Blood bilirubin increased [Recovered/Resolved]

NARRATIVE: CASE EVENT DATE: 20190801
